FAERS Safety Report 6338572-2 (Version None)
Quarter: 2009Q3

REPORT INFORMATION
  Report Type: 
  Country: None (occurrence: None)
  Receive Date: 20090902
  Receipt Date: 20090828
  Transmission Date: 20100115
  Serious: Yes (Life-Threatening, Hospitalization)
  Sender: FDA-Public Use
  Company Number: JP-ABBOTT-09P-087-0559165-00

PATIENT
  Sex: Female
  Weight: 44.5 kg

DRUGS (10)
  1. HUMIRA [Suspect]
     Indication: RHEUMATOID ARTHRITIS
     Route: 058
     Dates: start: 20081001, end: 20090219
  2. METHOTREXATE [Concomitant]
     Indication: RHEUMATOID ARTHRITIS
     Dates: start: 19981109, end: 20090226
  3. METHOTREXATE [Concomitant]
  4. INDOMETACIN FARNESIL [Concomitant]
     Indication: RHEUMATOID ARTHRITIS
     Dates: start: 19980101
  5. ALFACALCIDOL [Concomitant]
     Indication: PROPHYLAXIS
     Dates: start: 19980101
  6. ALFACALCIDOL [Concomitant]
     Indication: ADVERSE EVENT
  7. SODIUM HYALURONATE [Concomitant]
     Indication: PROPHYLAXIS
     Dosage: QS, 5 TIMES A DAY
     Dates: start: 20020101
  8. SODIUM HYALURONATE [Concomitant]
     Indication: ADVERSE EVENT
  9. FOLIC ACID [Concomitant]
     Indication: PROPHYLAXIS
     Dates: start: 20020101
  10. FOLIC ACID [Concomitant]
     Indication: ADVERSE EVENT

REACTIONS (2)
  - BLOOD BETA-D-GLUCAN ABNORMAL [None]
  - PNEUMOCYSTIS JIROVECI PNEUMONIA [None]
